FAERS Safety Report 15426294 (Version 2)
Quarter: 2018Q4

REPORT INFORMATION
  Report Type: Spontaneous
  Country: PT (occurrence: PT)
  Receive Date: 20180925
  Receipt Date: 20181005
  Transmission Date: 20190204
  Serious: Yes (Life-Threatening, Other)
  Sender: FDA-Public Use
  Company Number: PT-SA-2018SA263619

PATIENT
  Age: 31 Year
  Sex: Female

DRUGS (5)
  1. AMPICILLIN [Concomitant]
     Active Substance: AMPICILLIN
     Indication: EPIDURAL ANAESTHESIA
     Dosage: UNK
     Route: 042
  2. RANITIDINE. [Suspect]
     Active Substance: RANITIDINE
     Indication: EPIDURAL ANAESTHESIA
     Dosage: UNK
     Route: 042
     Dates: start: 2016
  3. ROPIVACAINE. [Concomitant]
     Active Substance: ROPIVACAINE HYDROCHLORIDE
     Indication: EPIDURAL ANAESTHESIA
     Dosage: UNK
     Route: 008
     Dates: start: 201604
  4. METOCLOPRAMIDE. [Concomitant]
     Active Substance: METOCLOPRAMIDE
     Indication: EPIDURAL ANAESTHESIA
     Dosage: UNK
     Route: 042
     Dates: start: 2016
  5. SUFENTANIL [Concomitant]
     Active Substance: SUFENTANIL
     Indication: EPIDURAL ANAESTHESIA
     Dosage: UNK
     Route: 008
     Dates: start: 20160401

REACTIONS (6)
  - Maternal exposure during pregnancy [Unknown]
  - Pruritus [Unknown]
  - Dyspnoea [Unknown]
  - Angioedema [Unknown]
  - Anaphylactic reaction [Unknown]
  - Erythema [Unknown]

NARRATIVE: CASE EVENT DATE: 2016
